FAERS Safety Report 24167872 (Version 1)
Quarter: 2024Q3

REPORT INFORMATION
  Report Type: Report from Study
  Country: IL (occurrence: IL)
  Receive Date: 20240802
  Receipt Date: 20240802
  Transmission Date: 20241016
  Serious: Yes (Other)
  Sender: ABBVIE
  Company Number: IL-ABBVIE-20K-082-3221553-00

PATIENT
  Age: 72 Year
  Sex: Female
  Weight: 62 kg

DRUGS (22)
  1. VENETOCLAX [Suspect]
     Active Substance: VENETOCLAX
     Indication: Chronic lymphocytic leukaemia
     Route: 048
     Dates: start: 20191118, end: 20191124
  2. VENETOCLAX [Suspect]
     Active Substance: VENETOCLAX
     Indication: Chronic lymphocytic leukaemia
     Route: 048
     Dates: start: 20191125, end: 20191202
  3. VENETOCLAX [Suspect]
     Active Substance: VENETOCLAX
     Indication: Chronic lymphocytic leukaemia
     Route: 048
     Dates: start: 20191203, end: 20191209
  4. VENETOCLAX [Suspect]
     Active Substance: VENETOCLAX
     Indication: Chronic lymphocytic leukaemia
     Route: 048
     Dates: start: 20191210, end: 20191216
  5. VENETOCLAX [Suspect]
     Active Substance: VENETOCLAX
     Indication: Chronic lymphocytic leukaemia
     Dosage: INTERRUPTION DUE TO AE
     Route: 048
     Dates: start: 20191217, end: 20191230
  6. VENETOCLAX [Suspect]
     Active Substance: VENETOCLAX
     Indication: Chronic lymphocytic leukaemia
     Dosage: MODIFICATION TO THE DAILY DOSE DUE TO AE
     Route: 048
     Dates: start: 20200108, end: 20200218
  7. VENETOCLAX [Suspect]
     Active Substance: VENETOCLAX
     Indication: Chronic lymphocytic leukaemia
     Dosage: MODIFICATION TO THE DAILY DOSE DUE TO AE
     Route: 048
     Dates: start: 20201202, end: 20210427
  8. VENETOCLAX [Suspect]
     Active Substance: VENETOCLAX
     Indication: Chronic lymphocytic leukaemia
     Dosage: MODIFICATION TO THE DAILY DOSE DUE TO AE
     Route: 048
     Dates: start: 20200219, end: 20201201
  9. VENETOCLAX [Suspect]
     Active Substance: VENETOCLAX
     Indication: Chronic lymphocytic leukaemia
     Route: 048
     Dates: start: 20210428, end: 20211103
  10. RITUXIMAB [Suspect]
     Active Substance: RITUXIMAB
     Indication: B-lymphocyte count increased
     Route: 065
     Dates: start: 20200101, end: 20200101
  11. RITUXIMAB [Suspect]
     Active Substance: RITUXIMAB
     Indication: B-lymphocyte count increased
     Route: 065
     Dates: start: 20200219, end: 20200219
  12. RITUXIMAB [Suspect]
     Active Substance: RITUXIMAB
     Indication: B-lymphocyte count increased
     Dosage: CYCLE NUMBER 3
     Route: 065
     Dates: start: 20200325, end: 20200325
  13. RITUXIMAB [Suspect]
     Active Substance: RITUXIMAB
     Indication: B-lymphocyte count increased
     Route: 065
     Dates: start: 20200506, end: 20200506
  14. RITUXIMAB [Suspect]
     Active Substance: RITUXIMAB
     Indication: B-lymphocyte count increased
     Dosage: CYCLE 4
     Route: 065
     Dates: start: 20200607, end: 20200607
  15. RITUXIMAB [Suspect]
     Active Substance: RITUXIMAB
     Indication: B-lymphocyte count increased
     Route: 065
     Dates: start: 20200708, end: 20200708
  16. ALLOPURINOL [Concomitant]
     Active Substance: ALLOPURINOL
     Indication: Prophylaxis
     Dates: start: 20191113
  17. ELIQUIS [Concomitant]
     Active Substance: APIXABAN
     Indication: Arrhythmia
     Dates: start: 20170620
  18. BISOPROLOL FUMARATE [Concomitant]
     Active Substance: BISOPROLOL FUMARATE
     Indication: Atrial fibrillation
     Dates: start: 20050418
  19. LIPITOR [Concomitant]
     Active Substance: ATORVASTATIN CALCIUM
     Indication: Dyslipidaemia
     Dates: start: 20170201
  20. OMEPRAZOLE [Concomitant]
     Active Substance: OMEPRAZOLE
     Indication: Prophylaxis
     Dates: start: 20160513
  21. PROTHIAZINE [Concomitant]
     Indication: Prophylaxis
     Dates: start: 20200101, end: 20200101
  22. PROTHIAZINE [Concomitant]
     Indication: Prophylaxis
     Dates: start: 20200219

REACTIONS (5)
  - Disease progression [Unknown]
  - Neutropenia [Recovered/Resolved]
  - Neutropenia [Recovered/Resolved]
  - Neutropenia [Recovered/Resolved]
  - Neutropenia [Recovered/Resolved]

NARRATIVE: CASE EVENT DATE: 20191225
